FAERS Safety Report 9518437 (Version 2)
Quarter: 2013Q3

REPORT INFORMATION
  Report Type: Spontaneous
  Country: IT (occurrence: IT)
  Receive Date: 20130912
  Receipt Date: 20130925
  Transmission Date: 20140515
  Serious: Yes (Hospitalization)
  Sender: FDA-Public Use
  Company Number: IT-GE HEALTHCARE MEDICAL DIAGNOSTICS-M123-PR-1309S-0007

PATIENT
  Age: 62 Year
  Sex: Female

DRUGS (5)
  1. ADREVIEW [Suspect]
     Indication: PRODUCT USED FOR UNKNOWN INDICATION
     Route: 042
     Dates: start: 20130807, end: 20130807
  2. ADREVIEW [Suspect]
     Indication: DIAGNOSTIC PROCEDURE
  3. DOMPERIDONE [Concomitant]
  4. GUTRON [Concomitant]
  5. MADOPAR [Concomitant]

REACTIONS (1)
  - Dermatitis exfoliative [Not Recovered/Not Resolved]
